FAERS Safety Report 24176867 (Version 2)
Quarter: 2024Q3

REPORT INFORMATION
  Report Type: Spontaneous
  Country: RU (occurrence: RU)
  Receive Date: 20240806
  Receipt Date: 20240807
  Transmission Date: 20241017
  Serious: Yes (Other)
  Sender: SANDOZ
  Company Number: RU-002147023-NVSC2023RU201147

PATIENT

DRUGS (6)
  1. CYCLOPHOSPHAMIDE [Suspect]
     Active Substance: CYCLOPHOSPHAMIDE
     Indication: Prophylaxis against graft versus host disease
     Dosage: 100 MG/KG, D+3, D+4
     Route: 065
  2. CYCLOPHOSPHAMIDE [Suspect]
     Active Substance: CYCLOPHOSPHAMIDE
     Indication: Allogenic stem cell transplantation
  3. MYCOPHENOLATE MOFETIL [Suspect]
     Active Substance: MYCOPHENOLATE MOFETIL
     Indication: Graft versus host disease
     Dosage: UNK
     Route: 065
  4. MYCOPHENOLATE MOFETIL [Suspect]
     Active Substance: MYCOPHENOLATE MOFETIL
     Indication: Allogenic stem cell transplantation
  5. TACROLIMUS [Suspect]
     Active Substance: TACROLIMUS
     Indication: Graft versus host disease
     Dosage: UNK
     Route: 065
  6. TACROLIMUS [Suspect]
     Active Substance: TACROLIMUS
     Indication: Allogenic stem cell transplantation

REACTIONS (2)
  - Graft versus host disease in liver [Unknown]
  - Product use in unapproved indication [Unknown]
